FAERS Safety Report 6925147-7 (Version None)
Quarter: 2010Q3

REPORT INFORMATION
  Report Type: 
  Country: None (occurrence: None)
  Receive Date: 20100810
  Receipt Date: 20100805
  Transmission Date: 20110219
  Serious: Yes (Other)
  Sender: FDA-Public Use
  Company Number: A0874200A

PATIENT
  Age: 45 Year
  Sex: Male

DRUGS (1)
  1. METHYLCELLULOSE (METHYLCELLULOSE) POWDER REGULAR [Suspect]
     Indication: PRODUCT USED FOR UNKNOWN INDICATION

REACTIONS (2)
  - NEPHROLITHIASIS [None]
  - PAIN [None]
